FAERS Safety Report 7967287-X (Version None)
Quarter: 2011Q4

REPORT INFORMATION
  Report Type: 
  Country: None (occurrence: None)
  Receive Date: 20111122
  Receipt Date: 20110826
  Transmission Date: 20120403
  Serious: No
  Sender: FDA-Public Use
  Company Number: PHHY2011US61550

PATIENT
  Age: 40 Year
  Sex: Female

DRUGS (1)
  1. GILENYA [Suspect]
     Indication: MULTIPLE SCLEROSIS
     Dosage: 0.5 MG, DAILY, ORAL
     Route: 048
     Dates: start: 20110526

REACTIONS (9)
  - SINUSITIS [None]
  - DIARRHOEA [None]
  - PYREXIA [None]
  - BACK PAIN [None]
  - HEAD DISCOMFORT [None]
  - SKIN DISCOLOURATION [None]
  - COUGH [None]
  - ABDOMINAL DISCOMFORT [None]
  - HEART RATE IRREGULAR [None]
